FAERS Safety Report 9861079 (Version 1)
Quarter: 2014Q1

REPORT INFORMATION
  Report Type: Spontaneous
  Country: US (occurrence: US)
  Receive Date: 20140202
  Receipt Date: 20140202
  Transmission Date: 20141002
  Serious: No
  Sender: FDA-Public Use
  Company Number: US-ALLERGAN-1303457US

PATIENT
  Age: 43 Year
  Sex: Male

DRUGS (2)
  1. BOTOX [Suspect]
     Indication: MIGRAINE
     Dosage: 200 UNITS, SINGLE
     Route: 030
     Dates: start: 20120821, end: 20120821
  2. GOODY^S POWDERS [Concomitant]
     Indication: PAIN
     Dosage: UNK, UNKNOWN
     Route: 048

REACTIONS (1)
  - Erectile dysfunction [Recovered/Resolved]
